FAERS Safety Report 24564296 (Version 1)
Quarter: 2024Q4

REPORT INFORMATION
  Report Type: Spontaneous
  Country: US (occurrence: None)
  Receive Date: 20241029
  Receipt Date: 20241029
  Transmission Date: 20250115
  Serious: Yes (Hospitalization)
  Sender: Public
  Company Number: None

PATIENT
  Age: 36 Year
  Sex: Female

DRUGS (14)
  1. ADEMPAS [Suspect]
     Active Substance: RIOCIGUAT
     Indication: Pulmonary hypertension
     Dosage: FREQUENCY : TWICE A DAY;?
     Route: 048
     Dates: start: 20190518
  2. POTASSIUM CHLORIDE [Concomitant]
  3. SPIRONOLACTONE [Concomitant]
     Active Substance: SPIRONOLACTONE
  4. MAGNESIUM OXIDE [Concomitant]
     Active Substance: MAGNESIUM OXIDE
  5. PRAVASTATIN [Concomitant]
     Active Substance: PRAVASTATIN
  6. RIVAROXABAN [Concomitant]
     Active Substance: RIVAROXABAN
  7. NORTRIPTYLINE [Concomitant]
     Active Substance: NORTRIPTYLINE
  8. myc:ophenolate [Concomitant]
  9. LISINOPRIL [Concomitant]
     Active Substance: LISINOPRIL
  10. TORSEMIDE [Concomitant]
     Active Substance: TORSEMIDE
  11. tac:rolimus [Concomitant]
  12. FERROUS SULFATE [Concomitant]
     Active Substance: FERROUS SULFATE
  13. VITAMIN C [Concomitant]
     Active Substance: ASCORBIC ACID
  14. ALBUTEROL HFA [Concomitant]

REACTIONS (3)
  - Peripheral swelling [None]
  - Respiratory failure [None]
  - Hypoxia [None]

NARRATIVE: CASE EVENT DATE: 20240928
